FAERS Safety Report 8785055 (Version 1)
Quarter: 2012Q4

REPORT INFORMATION
  Report Type: Spontaneous
  Country: IT (occurrence: None)
  Receive Date: 20120831
  Receipt Date: 20120831
  Transmission Date: 20130627
  Serious: No
  Sender: FDA-Public Use
  Company Number: 1208ITA004720

PATIENT
  Age: 42 Year
  Sex: Female

DRUGS (1)
  1. CEDAX [Suspect]
     Indication: DENTAL CARE
     Dosage: 1 posological unit
     Route: 048
     Dates: start: 20120731, end: 20120801

REACTIONS (3)
  - Asthenia [None]
  - Tachycardia [None]
  - Tremor [None]
